FAERS Safety Report 8615939-0 (Version None)
Quarter: 2012Q3

REPORT INFORMATION
  Report Type: 
  Country: None (occurrence: None)
  Receive Date: 20120823
  Receipt Date: 20120820
  Transmission Date: 20120928
  Serious: Yes (Disabling)
  Sender: FDA-Public Use
  Company Number: GB-GLAXOSMITHKLINE-B0823888A

PATIENT
  Age: 90 Year
  Sex: Male

DRUGS (1)
  1. LAMOTRIGINE [Suspect]
     Indication: BIPOLAR DISORDER
     Dosage: 400MG PER DAY
     Route: 065

REACTIONS (3)
  - ANGER [None]
  - OFF LABEL USE [None]
  - GAIT DISTURBANCE [None]
